FAERS Safety Report 9351199 (Version 1)
Quarter: 2013Q2

REPORT INFORMATION
  Report Type: Spontaneous
  Country: NL (occurrence: NL)
  Receive Date: 20130617
  Receipt Date: 20130617
  Transmission Date: 20140414
  Serious: Yes (Other)
  Sender: FDA-Public Use
  Company Number: NL-PFIZER INC-2013178798

PATIENT
  Age: 80 Year
  Sex: Female

DRUGS (12)
  1. LYRICA [Suspect]
     Indication: NEURALGIA
     Dosage: 75 MG, 2X/DAY
     Dates: start: 20121113, end: 20121122
  2. NITROFURANTOIN [Concomitant]
     Dosage: 50 MG, 4X/DAY
     Dates: start: 20121116, end: 20121123
  3. LACTULOSE [Concomitant]
     Dosage: 1 DF, 1X/DAY
     Dates: start: 20120822
  4. NORGALAX [Concomitant]
     Dosage: 10 G, AS NEEDED
     Dates: start: 20120801
  5. COLECALCIFEROL [Concomitant]
     Dosage: 50000 IU, EVERY 2 MONTHS
     Dates: start: 20110307
  6. CALCICHEW [Concomitant]
     Dosage: 500 MG, 1X/DAY
     Dates: start: 20110107
  7. ACENOCOUMAROL [Concomitant]
     Dosage: UNK
     Dates: start: 20101207
  8. BISMUTH SUBNITRATE/LIDOCAINE/ZINC OXIDE [Concomitant]
     Dosage: UNK
     Dates: start: 20120801
  9. METOPROLOL [Concomitant]
     Dosage: 50 MG, 1X/DAY
     Dates: start: 20120606
  10. SIMVASTATIN [Concomitant]
     Dosage: 40 MG, 1X/DAY
     Dates: start: 20120201
  11. EVISTA [Concomitant]
     Dosage: 60 MG, 1X/DAY
     Dates: start: 20120112
  12. OXAZEPAM [Concomitant]
     Dosage: AS NEEDED MAX 3 TIMES PER DAY 1 TABLET
     Dates: start: 20120906

REACTIONS (2)
  - Urinary tract infection [Unknown]
  - Chest pain [Recovered/Resolved]
